FAERS Safety Report 9785832 (Version 1)
Quarter: 2013Q4

REPORT INFORMATION
  Report Type: Spontaneous
  Country: BR (occurrence: None)
  Receive Date: 20131224
  Receipt Date: 20131224
  Transmission Date: 20140711
  Serious: Yes (Other)
  Sender: FDA-Public Use
  Company Number: SYM-2013-14281

PATIENT
  Age: 69 Year
  Sex: Female

DRUGS (11)
  1. ELIDEL [Suspect]
     Indication: VITILIGO
     Dosage: IN FACE, 2 IN 1 D, TOPICAL
     Route: 061
  2. ELIDEL [Suspect]
     Indication: OFF LABEL USE
     Dosage: IN FACE, 2 IN 1 D, TOPICAL
     Route: 061
  3. CLOBETASOL PROPIONATE [Suspect]
     Indication: VITILIGO
     Dosage: 5 MG SPORADICALLY (WHEN PHYSICIAN ORIENT)
  4. CLOBETASOL PROPIONATE [Suspect]
     Indication: RASH PAPULAR
     Dosage: 5 MG SPORADICALLY (WHEN PHYSICIAN ORIENT)
  5. CAPTOPRIL [Suspect]
     Indication: HYPERTENSION
     Dosage: 1 DOSAGE FORMS, 1 IN 1 D
     Dates: start: 2003
  6. DERMABLEND COVER [Suspect]
     Indication: VITILIGO
  7. HYDROCHLOROTHIAZIDE [Suspect]
     Indication: HYPERTENSION
     Dosage: 1 DOSAGE FORMS, 1 IN 1 D,
  8. ARA 2 (LOSARTAN POTASSIUM) [Suspect]
     Indication: HYPERTENSION
     Dosage: 1 DOSAGE FORM, 1 IN 1 D
     Dates: start: 2003
  9. METFORMIN [Suspect]
     Indication: DIABETES MELLITUS
  10. LEVOTHYROXINE SODIUM [Suspect]
     Indication: HYPOTHYROIDISM
     Dosage: 1 DOSAGE FORMS, 1 IN 1 D
  11. AAS (ACETYLSALICYLIC ACID) [Suspect]
     Indication: HYPERTENSION
     Dosage: 1 DOSAGE FORMS, 1 IN 1 D

REACTIONS (5)
  - Rash [None]
  - Off label use [None]
  - Skin discolouration [None]
  - Tooth fracture [None]
  - Urticaria [None]
